FAERS Safety Report 5057329-6 (Version None)
Quarter: 2006Q3

REPORT INFORMATION
  Report Type: 
  Country: None (occurrence: None)
  Receive Date: 20060721
  Receipt Date: 20050810
  Transmission Date: 20061208
  Serious: No
  Sender: FDA-Public Use
  Company Number: US-GLAXOSMITHKLINE-A0569721A

PATIENT
  Age: 39 Year
  Sex: Female

DRUGS (7)
  1. AVANDIA [Suspect]
     Dosage: 4MG PER DAY
     Route: 048
     Dates: start: 20050801
  2. METFORMIN [Concomitant]
  3. LESCOL [Concomitant]
  4. AVAPRO [Concomitant]
  5. SYNTHROID [Concomitant]
  6. GLIPIZIDE [Concomitant]
  7. ACTOS [Concomitant]

REACTIONS (2)
  - BLOOD PRESSURE DECREASED [None]
  - HEADACHE [None]
